FAERS Safety Report 8772594 (Version 1)
Quarter: 2012Q4

REPORT INFORMATION
  Report Type: 
  Country: US (occurrence: US)
  Receive Date: 20120905
  Receipt Date: 20120905
  Transmission Date: 20130627
  Serious: No
  Sender: FDA-Public Use
  Company Number: US-BAYER-2012-090614

PATIENT
  Age: 37 Year
  Sex: Female

DRUGS (1)
  1. MIRENA [Suspect]
     Indication: CONTRACEPTION
     Dosage: UNK
     Route: 015
     Dates: start: 2008, end: 20120730

REACTIONS (7)
  - Amenorrhoea [None]
  - Menorrhagia [None]
  - Pelvic pain [None]
  - Abdominal pain [None]
  - Back pain [None]
  - Device expulsion [None]
  - Coital bleeding [None]
